FAERS Safety Report 5624030-7 (Version None)
Quarter: 2008Q1

REPORT INFORMATION
  Report Type: 
  Country: None (occurrence: None)
  Receive Date: 20080213
  Receipt Date: 20070525
  Transmission Date: 20080703
  Serious: No
  Sender: FDA-Public Use
  Company Number: US-KINGPHARMUSA00001-K200700650

PATIENT

DRUGS (3)
  1. EPIPEN JR. [Suspect]
     Dosage: .15 MG, SINGLE
     Dates: start: 20070525, end: 20070525
  2. GLUCOVANCE /01182201/ [Concomitant]
     Indication: DIABETES MELLITUS
  3. BENICAR [Concomitant]

REACTIONS (4)
  - ACCIDENTAL EXPOSURE [None]
  - BLOOD PRESSURE INCREASED [None]
  - HEART RATE INCREASED [None]
  - INJECTION SITE PAIN [None]
